FAERS Safety Report 6626117-9 (Version None)
Quarter: 2010Q1

REPORT INFORMATION
  Report Type: 
  Country: None (occurrence: None)
  Receive Date: 20100310
  Receipt Date: 20100303
  Transmission Date: 20100710
  Serious: Yes (Congenital Anomaly)
  Sender: FDA-Public Use
  Company Number: B0637162A

PATIENT

DRUGS (1)
  1. LAMOTRIGINE [Suspect]
     Indication: EPILEPSY

REACTIONS (2)
  - COARCTATION OF THE AORTA [None]
  - CONGENITAL CARDIOVASCULAR ANOMALY [None]
